FAERS Safety Report 25141706 (Version 1)
Quarter: 2025Q1

REPORT INFORMATION
  Report Type: Spontaneous
  Country: US (occurrence: US)
  Receive Date: 20250331
  Receipt Date: 20250331
  Transmission Date: 20250409
  Serious: No
  Sender: SANOFI AVENTIS
  Company Number: US-SANOFI-02464382

PATIENT
  Age: 28 Year
  Sex: Male

DRUGS (1)
  1. DUPIXENT [Suspect]
     Active Substance: DUPILUMAB
     Indication: Dermatitis atopic
     Dates: start: 20250321

REACTIONS (3)
  - Chest pain [Unknown]
  - Loss of personal independence in daily activities [Unknown]
  - Back pain [Unknown]

NARRATIVE: CASE EVENT DATE: 20250301
